FAERS Safety Report 5768228-6 (Version None)
Quarter: 2008Q2

REPORT INFORMATION
  Report Type: 
  Country: None (occurrence: None)
  Receive Date: 20080612
  Receipt Date: 20080606
  Transmission Date: 20081010
  Serious: Yes (Hospitalization, Other)
  Sender: FDA-Public Use
  Company Number: GB-MERCK-0412GBR00008

PATIENT
  Age: 58 Year
  Sex: Male

DRUGS (7)
  1. ZOCOR [Suspect]
     Indication: HYPERCHOLESTEROLAEMIA
     Route: 048
  2. BISOPROLOL [Concomitant]
     Route: 065
  3. AMLODIPINE BESYLATE [Suspect]
     Route: 065
  4. SPIRONOLACTONE [Concomitant]
     Route: 065
  5. RAMIPRIL [Concomitant]
     Route: 065
  6. WARFARIN [Suspect]
     Indication: MITRAL VALVE REPLACEMENT
     Route: 065
  7. PRAVASTATIN SODIUM [Suspect]
     Route: 065

REACTIONS (5)
  - DRUG INTERACTION [None]
  - GUILLAIN-BARRE SYNDROME [None]
  - INTERNATIONAL NORMALISED RATIO ABNORMAL [None]
  - RECTAL HAEMORRHAGE [None]
  - RENAL FAILURE [None]
